FAERS Safety Report 4673630-X (Version None)
Quarter: 2005Q2

REPORT INFORMATION
  Report Type: 
  Country: None (occurrence: None)
  Receive Date: 20050525
  Receipt Date: 20050519
  Transmission Date: 20051028
  Serious: Yes (Death, Hospitalization)
  Sender: FDA-Public Use
  Company Number: 2005AC00758

PATIENT
  Age: 71 Year
  Sex: Male

DRUGS (1)
  1. GEFITINIB [Suspect]
     Indication: SQUAMOUS CELL CARCINOMA

REACTIONS (2)
  - CIRCULATORY COLLAPSE [None]
  - INTERSTITIAL LUNG DISEASE [None]
